FAERS Safety Report 7630927-9 (Version None)
Quarter: 2011Q3

REPORT INFORMATION
  Report Type: 
  Country: None (occurrence: None)
  Receive Date: 20110725
  Receipt Date: 20110713
  Transmission Date: 20111222
  Serious: Yes (Hospitalization)
  Sender: FDA-Public Use
  Company Number: US-BIOGENIDEC-2009BI041640

PATIENT
  Age: 48 Year
  Sex: Female

DRUGS (3)
  1. TYSABRI [Suspect]
     Route: 042
     Dates: start: 20061005, end: 20100104
  2. TYSABRI [Suspect]
     Dates: start: 20110614
  3. TYSABRI [Suspect]
     Indication: MULTIPLE SCLEROSIS
     Route: 042
     Dates: start: 20040101

REACTIONS (9)
  - BREAST CANCER STAGE I [None]
  - SEPSIS [None]
  - VISUAL IMPAIRMENT [None]
  - RASH [None]
  - DIZZINESS [None]
  - BALANCE DISORDER [None]
  - WHITE BLOOD CELL COUNT DECREASED [None]
  - FATIGUE [None]
  - DIABETES MELLITUS [None]
